FAERS Safety Report 8420328 (Version 2)
Quarter: 2012Q4

REPORT INFORMATION
  Report Type: 
  Country: US (occurrence: US)
  Receive Date: 20120222
  Receipt Date: 20121015
  Transmission Date: 20130627
  Serious: No
  Sender: FDA-Public Use
  Company Number: US-BRISTOL-MYERS SQUIBB COMPANY-16243735

PATIENT
  Age: 40 Year
  Sex: Female

DRUGS (3)
  1. KENALOG-40 INJ [Suspect]
     Indication: OEDEMA PERIPHERAL
     Dates: start: 2009
  2. XYLOCAINE [Concomitant]
     Dosage: 1 DF = 2.0 cc 1% xylocaine
  3. DEXAMETHASONE ACETATE [Concomitant]

REACTIONS (1)
  - Injection site atrophy [Unknown]
